FAERS Safety Report 11852304 (Version 2)
Quarter: 2016Q1

REPORT INFORMATION
  Report Type: Spontaneous
  Country: US (occurrence: US)
  Receive Date: 20151218
  Receipt Date: 20160105
  Transmission Date: 20160526
  Serious: No
  Sender: FDA-Public Use
  Company Number: US-GLAXOSMITHKLINE-US2015177226

PATIENT
  Age: 47 Year
  Sex: Male

DRUGS (1)
  1. ALLI [Suspect]
     Active Substance: ORLISTAT
     Indication: WEIGHT LOSS DIET
     Dosage: UNK
     Dates: start: 2011, end: 20151214

REACTIONS (4)
  - Steatorrhoea [Recovered/Resolved]
  - Treatment noncompliance [Unknown]
  - Product quality issue [Unknown]
  - Drug ineffective [Unknown]
